FAERS Safety Report 17603222 (Version 31)
Quarter: 2023Q4

REPORT INFORMATION
  Report Type: Spontaneous
  Country: US (occurrence: US)
  Receive Date: 20200331
  Receipt Date: 20231230
  Transmission Date: 20240110
  Serious: No
  Sender: FDA-Public Use
  Company Number: US-GLAXOSMITHKLINE-US2020AMR053192

PATIENT
  Age: 61 Year
  Sex: Female

DRUGS (20)
  1. ZEJULA [Suspect]
     Active Substance: NIRAPARIB
     Indication: Ovarian cancer
     Dosage: 200 MG, QD
     Dates: start: 202001
  2. ZEJULA [Suspect]
     Active Substance: NIRAPARIB
     Dosage: 200 MG, QD
     Dates: start: 20200226
  3. ZEJULA [Suspect]
     Active Substance: NIRAPARIB
     Dosage: 200 MG, QD
     Dates: start: 20200226, end: 20200323
  4. ZEJULA [Suspect]
     Active Substance: NIRAPARIB
     Dosage: 1 DF, QD (AT NIGHT)
  5. ZEJULA [Suspect]
     Active Substance: NIRAPARIB
     Dosage: 100 MG, DAILY
     Dates: start: 20200226
  6. ZEJULA [Suspect]
     Active Substance: NIRAPARIB
     Dosage: 100 MG, QD
  7. ZEJULA [Suspect]
     Active Substance: NIRAPARIB
     Dosage: 100 MG, QD
     Route: 048
  8. ZEJULA [Suspect]
     Active Substance: NIRAPARIB
     Dosage: 100 MG, QD
     Route: 048
  9. ZEJULA [Suspect]
     Active Substance: NIRAPARIB
     Dosage: UNK (100MG ALTERNATING WITH 200MG QOD)
     Route: 048
  10. ZEJULA [Suspect]
     Active Substance: NIRAPARIB
     Dosage: UNK (100MG ALTERNATING WITH 200MG QOD)
  11. ZEJULA [Suspect]
     Active Substance: NIRAPARIB
     Dosage: UNK (100MG ALTERNATING WITH 200MG QOD)(100MG ALTERNATING WITH 200MG QOD)
  12. ZEJULA [Suspect]
     Active Substance: NIRAPARIB
     Dosage: UNK (100MG ALTERNATING WITH 200MG DAILY)
  13. ZEJULA [Suspect]
     Active Substance: NIRAPARIB
     Dosage: UNK (100MG ALTERNATING WITH 200MG ONCE DAILY EVERY OTHER DAY)
     Route: 048
  14. ZEJULA [Suspect]
     Active Substance: NIRAPARIB
     Dosage: UNK (100MG ALTERNATING WITH 200MG ONCE DAILY EVERY OTHER DAY)
  15. ZEJULA [Suspect]
     Active Substance: NIRAPARIB
     Dosage: UNK (ALTERNATES 100 MG ONE DAY THEN 200 MG THE NEXT DAY)
     Route: 048
     Dates: end: 20221006
  16. ZEJULA [Suspect]
     Active Substance: NIRAPARIB
     Dosage: UNK (100 MG TAKE ALTERNATING DOSE 100 MG ONE DAY THEN 200 MG NEXT DAY)
     Route: 048
     Dates: start: 202210
  17. ZEJULA [Suspect]
     Active Substance: NIRAPARIB
     Dosage: UNK (ALTERNATING DOSES OF 200 MG ONE DAY THEN 100 MG NEXT DAY)
  18. ZEJULA [Suspect]
     Active Substance: NIRAPARIB
     Dosage: UNK  (100 MG ALTERNATING DOSES OF 100 MG ONE DAY THEN 200 MG NEXT DAY)
  19. ZEJULA [Suspect]
     Active Substance: NIRAPARIB
     Dosage: UNK  (ALTERNATING 100 MG ONE DAY THEN 200 MG NEXT DAY)
  20. ZEJULA [Suspect]
     Active Substance: NIRAPARIB
     Indication: Ovarian cancer
     Dosage: UNK  (100 MG TAKE ALTERNATING DOSE 100 MG ONE DAY THEN 200 MG NEXT DAY)

REACTIONS (26)
  - Platelet count decreased [Recovered/Resolved]
  - Increased tendency to bruise [Unknown]
  - Epistaxis [Recovered/Resolved]
  - Blood pressure increased [Not Recovered/Not Resolved]
  - Nausea [Recovering/Resolving]
  - Weight decreased [Recovering/Resolving]
  - Dyspnoea [Not Recovered/Not Resolved]
  - Red blood cell count decreased [Recovered/Resolved]
  - Insomnia [Recovering/Resolving]
  - Constipation [Unknown]
  - Vomiting [Recovered/Resolved]
  - Joint swelling [Unknown]
  - Hypoaesthesia [Unknown]
  - Peripheral swelling [Unknown]
  - Arthralgia [Not Recovered/Not Resolved]
  - Joint stiffness [Not Recovered/Not Resolved]
  - Depression [Not Recovered/Not Resolved]
  - Hypertension [Not Recovered/Not Resolved]
  - Surgery [Not Recovered/Not Resolved]
  - Fatigue [Not Recovered/Not Resolved]
  - Blood iron decreased [Not Recovered/Not Resolved]
  - Vitamin B12 decreased [Unknown]
  - Dyspnoea exertional [Not Recovered/Not Resolved]
  - Product use issue [Unknown]
  - Inappropriate schedule of product administration [Unknown]
  - Off label use [Unknown]

NARRATIVE: CASE EVENT DATE: 20221010
